FAERS Safety Report 4042647 (Version 3)
Quarter: 2017Q1

REPORT INFORMATION
  Report Type: Spontaneous
  Country: AT (occurrence: AT)
  Receive Date: 20031202
  Receipt Date: 20170308
  Transmission Date: 20170429
  Serious: Yes (Death, Life-Threatening)
  Sender: FDA-Public Use
  Company Number: AT-JNJFOC-20031104222

PATIENT
  Age: 82 Year
  Sex: Female

DRUGS (15)
  1. HALDOL [Suspect]
     Active Substance: HALOPERIDOL
     Indication: PRODUCT USED FOR UNKNOWN INDICATION
     Dates: start: 20030723, end: 20030727
  2. ISOPTIN [Concomitant]
     Active Substance: VERAPAMIL HYDROCHLORIDE
     Dosage: LONG TERM
     Dates: end: 20030727
  3. CALCIUM CARBONATE. [Concomitant]
     Active Substance: CALCIUM CARBONATE
     Dates: end: 20030727
  4. TRITTICO [Concomitant]
     Active Substance: TRAZODONE HYDROCHLORIDE
     Dates: end: 20030727
  5. KCL RETARD [Concomitant]
     Active Substance: POTASSIUM CHLORIDE
     Dates: start: 20030723, end: 20030727
  6. PANTOLOC [Concomitant]
     Active Substance: PANTOPRAZOLE SODIUM
     Dates: start: 20030723, end: 20030727
  7. FOSAMAX [Concomitant]
     Active Substance: ALENDRONATE SODIUM
     Dates: end: 20030727
  8. GEWACALM [Concomitant]
     Active Substance: DIAZEPAM
     Dates: start: 20030726, end: 20030727
  9. SEROQUEL [Suspect]
     Active Substance: QUETIAPINE FUMARATE
     Indication: PRODUCT USED FOR UNKNOWN INDICATION
     Dates: start: 20030726, end: 20030727
  10. SEROQUEL [Suspect]
     Active Substance: QUETIAPINE FUMARATE
     Indication: PRODUCT USED FOR UNKNOWN INDICATION
     Dates: start: 20030725, end: 20030725
  11. SEROQUEL [Suspect]
     Active Substance: QUETIAPINE FUMARATE
     Indication: PRODUCT USED FOR UNKNOWN INDICATION
     Dates: start: 20030724, end: 20030724
  12. AKINETON [Concomitant]
     Active Substance: BIPERIDEN HYDROCHLORIDE
     Dates: start: 20030724, end: 20030725
  13. CORENITEC [Suspect]
     Active Substance: ENALAPRIL\HYDROCHLOROTHIAZIDE
     Indication: PRODUCT USED FOR UNKNOWN INDICATION
     Dosage: LONG TERM
     Dates: end: 20030727
  14. GEWACALM [Concomitant]
     Active Substance: DIAZEPAM
     Dates: start: 20030723, end: 20030725
  15. NACL [Concomitant]
     Active Substance: SODIUM CHLORIDE
     Dates: start: 20030723, end: 20030727

REACTIONS (6)
  - Hyponatraemia [Unknown]
  - Pulmonary embolism [Fatal]
  - Thrombophlebitis [Unknown]
  - Anaemia [Unknown]
  - Hypokalaemia [Unknown]
  - Fall [Unknown]

NARRATIVE: CASE EVENT DATE: 20030725
